FAERS Safety Report 6444278-1 (Version None)
Quarter: 2009Q4

REPORT INFORMATION
  Report Type: 
  Country: None (occurrence: None)
  Receive Date: 20091116
  Receipt Date: 20091116
  Transmission Date: 20100525
  Serious: No
  Sender: FDA-Public Use
  Company Number: None

PATIENT
  Sex: Male

DRUGS (1)
  1. LIDOCAINE 1% INJ [Suspect]
     Indication: CIRCUMCISION
     Dosage: 1 ML
     Dates: start: 20091016

REACTIONS (2)
  - DRUG INEFFECTIVE [None]
  - INADEQUATE ANALGESIA [None]
